FAERS Safety Report 18517007 (Version 1)
Quarter: 2020Q4

REPORT INFORMATION
  Report Type: Spontaneous
  Country: US (occurrence: US)
  Receive Date: 20201118
  Receipt Date: 20201118
  Transmission Date: 20210114
  Serious: Yes (Death)
  Sender: FDA-Public Use
  Company Number: None

PATIENT
  Age: 76 Year
  Sex: Female
  Weight: 92.1 kg

DRUGS (22)
  1. HUMALOG [Concomitant]
     Active Substance: INSULIN LISPRO
     Dates: start: 20201114, end: 20201117
  2. LASIX [Concomitant]
     Active Substance: FUROSEMIDE
     Dates: start: 20201113, end: 20201117
  3. ZOFRAN [Concomitant]
     Active Substance: ONDANSETRON HYDROCHLORIDE
     Dates: start: 20201113, end: 20201117
  4. LANTUS [Concomitant]
     Active Substance: INSULIN GLARGINE
     Dates: start: 20201113, end: 20201117
  5. ATIVAN [Concomitant]
     Active Substance: LORAZEPAM
     Dates: start: 20201117, end: 20201117
  6. VIBRAMYCIN [Concomitant]
     Active Substance: DOXYCYCLINE
     Dates: start: 20201113, end: 20201117
  7. VENTOLIN [Concomitant]
     Active Substance: ALBUTEROL SULFATE
     Dates: start: 20201113, end: 20201117
  8. ATARAX [Concomitant]
     Active Substance: HYDROXYZINE HYDROCHLORIDE
     Dates: start: 20201114, end: 20201117
  9. CYMBALTA [Concomitant]
     Active Substance: DULOXETINE HYDROCHLORIDE
     Dates: start: 20201113, end: 20201117
  10. IMDUR [Concomitant]
     Active Substance: ISOSORBIDE MONONITRATE
     Dates: start: 20201113, end: 20201117
  11. MIRABEGRON [Concomitant]
     Active Substance: MIRABEGRON
     Dates: start: 20201113, end: 20201117
  12. NORCO [Concomitant]
     Active Substance: ACETAMINOPHEN\HYDROCODONE BITARTRATE
     Dates: start: 20201113, end: 20201117
  13. PROTONIX [Concomitant]
     Active Substance: PANTOPRAZOLE SODIUM
     Dates: start: 20201113, end: 20201117
  14. VITAMIN C [Concomitant]
     Active Substance: ASCORBIC ACID
     Dates: start: 20201113, end: 20201117
  15. REMDESIVIR. [Suspect]
     Active Substance: REMDESIVIR
     Indication: COVID-19
     Dosage: ?          OTHER FREQUENCY:ONCE;?
     Route: 042
     Dates: start: 20201116, end: 20201117
  16. METOPROLOL TARTRATE. [Concomitant]
     Active Substance: METOPROLOL TARTRATE
     Dates: start: 20201113, end: 20201117
  17. ROCEPHIN [Concomitant]
     Active Substance: CEFTRIAXONE SODIUM
     Dates: start: 20201113, end: 20201117
  18. DECADRON [Concomitant]
     Active Substance: DEXAMETHASONE
     Dates: start: 20201113, end: 20201117
  19. ELIQUIS [Concomitant]
     Active Substance: APIXABAN
     Dates: start: 20201116, end: 20201117
  20. COLACE [Concomitant]
     Active Substance: DOCUSATE SODIUM
     Dates: start: 20201113, end: 20201117
  21. LIPITOR [Concomitant]
     Active Substance: ATORVASTATIN CALCIUM
     Dates: start: 20201113, end: 20201117
  22. ORAZINC [Concomitant]
     Dates: start: 20201113, end: 20201117

REACTIONS (4)
  - Death [None]
  - Atrial fibrillation [None]
  - Agitation [None]
  - Bilevel positive airway pressure [None]

NARRATIVE: CASE EVENT DATE: 20201117
